FAERS Safety Report 15251450 (Version 2)
Quarter: 2020Q2

REPORT INFORMATION
  Report Type: Spontaneous
  Country: JP (occurrence: JP)
  Receive Date: 20180807
  Receipt Date: 20200515
  Transmission Date: 20200713
  Serious: Yes (Hospitalization, Other)
  Sender: FDA-Public Use
  Company Number: JP-PFIZER INC-2018316475

PATIENT
  Age: 41 Year
  Sex: Male

DRUGS (5)
  1. ZOLPIDEM TARTRATE. [Suspect]
     Active Substance: ZOLPIDEM TARTRATE
     Dosage: 200 TO 500 MG, DAILY
  2. ZOLPIDEM TARTRATE. [Suspect]
     Active Substance: ZOLPIDEM TARTRATE
     Indication: INSOMNIA
     Dosage: 200 TO 300 MG DAILY
  3. ZOLPIDEM TARTRATE. [Suspect]
     Active Substance: ZOLPIDEM TARTRATE
     Indication: DEPRESSION
     Dosage: UNK
  4. TRIAZOLAM. [Suspect]
     Active Substance: TRIAZOLAM
     Indication: DEPRESSION
     Dosage: UNK
  5. TRIAZOLAM. [Suspect]
     Active Substance: TRIAZOLAM
     Indication: INSOMNIA

REACTIONS (6)
  - Drug abuse [Unknown]
  - Overdose [Recovered/Resolved]
  - Drug dependence [Recovered/Resolved]
  - Drug withdrawal convulsions [Unknown]
  - Head injury [Unknown]
  - Drug withdrawal syndrome [Unknown]
